FAERS Safety Report 17462303 (Version 1)
Quarter: 2020Q1

REPORT INFORMATION
  Report Type: Spontaneous
  Country: GB (occurrence: GB)
  Receive Date: 20200226
  Receipt Date: 20200226
  Transmission Date: 20200409
  Serious: Yes (Disabling, Other)
  Sender: FDA-Public Use
  Company Number: GB-ALLERGAN-1638178US

PATIENT
  Sex: Male

DRUGS (8)
  1. ASPIRIN. [Concomitant]
     Active Substance: ASPIRIN
  2. ATORVASTATIN [Concomitant]
     Active Substance: ATORVASTATIN
  3. CLOPIDOGREL [Concomitant]
     Active Substance: CLOPIDOGREL BISULFATE
  4. SIMVASTATIN. [Concomitant]
     Active Substance: SIMVASTATIN
  5. MAXITROL [Suspect]
     Active Substance: DEXAMETHASONE\NEOMYCIN SULFATE\POLYMYXIN B SULFATE
     Indication: CATARACT OPERATION
     Dosage: 1 GTT, QID
     Route: 047
     Dates: start: 20160119, end: 20160219
  6. ACULAR [Suspect]
     Active Substance: KETOROLAC TROMETHAMINE
     Indication: CATARACT OPERATION
     Dosage: 1 GTT, TID
     Route: 047
     Dates: start: 20160119, end: 20160219
  7. RAMIPRIL. [Concomitant]
     Active Substance: RAMIPRIL
  8. AMLODIPINE [Concomitant]
     Active Substance: AMLODIPINE BESYLATE

REACTIONS (7)
  - Visual impairment [Unknown]
  - Discomfort [Unknown]
  - Drug interaction [Unknown]
  - Corneal abrasion [Unknown]
  - Vision blurred [Unknown]
  - Ulcerative keratitis [Not Recovered/Not Resolved]
  - Corneal thinning [Unknown]

NARRATIVE: CASE EVENT DATE: 20160130
